FAERS Safety Report 12116819 (Version 2)
Quarter: 2020Q2

REPORT INFORMATION
  Report Type: Spontaneous
  Country: GB (occurrence: GB)
  Receive Date: 20160225
  Receipt Date: 20200629
  Transmission Date: 20200713
  Serious: Yes (Other)
  Sender: FDA-Public Use
  Company Number: GB-LUNDBECK-DKLU2010401

PATIENT
  Age: 75 Year
  Sex: Female

DRUGS (3)
  1. EPILIM EC [Suspect]
     Active Substance: VALPROATE SODIUM
     Indication: TEMPORAL LOBE EPILEPSY
     Route: 048
  2. FRISIUM [Suspect]
     Active Substance: CLOBAZAM
     Indication: TEMPORAL LOBE EPILEPSY
     Route: 065
  3. EPILIM EC [Suspect]
     Active Substance: VALPROATE SODIUM
     Route: 048

REACTIONS (9)
  - Eye contusion [Unknown]
  - Abnormal sleep-related event [Unknown]
  - Oral pain [Unknown]
  - Seizure [Unknown]
  - Epilepsy [Unknown]
  - Gingival pain [Unknown]
  - Alopecia [Unknown]
  - Somnambulism [Not Recovered/Not Resolved]
  - Amnesia [Not Recovered/Not Resolved]
